FAERS Safety Report 12879022 (Version 2)
Quarter: 2016Q4

REPORT INFORMATION
  Report Type: Report from Study
  Country: AR (occurrence: AR)
  Receive Date: 20161024
  Receipt Date: 20161210
  Transmission Date: 20170207
  Serious: Yes (Hospitalization, Congenital Anomaly)
  Sender: FDA-Public Use
  Company Number: PHHY2016AR144843

PATIENT
  Sex: Male
  Weight: 3.9 kg

DRUGS (1)
  1. GILENYA [Suspect]
     Active Substance: FINGOLIMOD HYDROCHLORIDE
     Indication: FOETAL EXPOSURE DURING PREGNANCY
     Dosage: MATERNAL DOSE: 0.5 MG, QD
     Route: 064

REACTIONS (6)
  - Congenital hydronephrosis [Recovered/Resolved]
  - Anaemia [Recovered/Resolved]
  - Ascites [Recovered/Resolved]
  - Infrequent bowel movements [Recovered/Resolved]
  - Foetal exposure during pregnancy [Unknown]
  - Congenital ureteric anomaly [Recovered/Resolved]
